FAERS Safety Report 5428558-4 (Version None)
Quarter: 2007Q3

REPORT INFORMATION
  Report Type: 
  Country: None (occurrence: None)
  Receive Date: 20070824
  Receipt Date: 20070820
  Transmission Date: 20080115
  Serious: Yes (Death)
  Sender: FDA-Public Use
  Company Number: 163-21880-07081135

PATIENT
  Age: 100 Year
  Sex: Female

DRUGS (1)
  1. REVLIMID [Suspect]
     Indication: MYELODYSPLASTIC SYNDROME
     Dosage: 5 MG, Q MONDAY, WEDNESDAY, FRIDAY, ORAL
     Route: 048
     Dates: start: 20070702, end: 20070810

REACTIONS (1)
  - DEATH [None]
